FAERS Safety Report 11838016 (Version 1)
Quarter: 2015Q4

REPORT INFORMATION
  Report Type: Report from Study
  Country: US (occurrence: US)
  Receive Date: 20151215
  Receipt Date: 20151215
  Transmission Date: 20160305
  Serious: Yes (Hospitalization)
  Sender: FDA-Public Use
  Company Number: US-CELGENEUS-163-C4047-11122491

PATIENT
  Age: 54 Year
  Sex: Male
  Weight: 81.9 kg

DRUGS (5)
  1. CC-4047 [Suspect]
     Active Substance: POMALIDOMIDE
     Indication: PLASMA CELL MYELOMA
     Dosage: 2 MILLIGRAM
     Route: 048
     Dates: start: 20111115, end: 20111206
  2. TRANSFUSIONS [Concomitant]
     Active Substance: UNSPECIFIED INGREDIENT
     Indication: GASTROINTESTINAL HAEMORRHAGE
     Route: 041
     Dates: start: 201112, end: 201112
  3. FENTANYL. [Concomitant]
     Active Substance: FENTANYL
     Route: 062
     Dates: start: 201112
  4. NEUPOGEN [Concomitant]
     Active Substance: FILGRASTIM
     Indication: GASTROINTESTINAL HAEMORRHAGE
     Route: 065
     Dates: start: 201112
  5. FENTANYL. [Concomitant]
     Active Substance: FENTANYL
     Indication: PAIN
     Route: 041
     Dates: start: 201112

REACTIONS (1)
  - Sepsis syndrome [Recovered/Resolved]

NARRATIVE: CASE EVENT DATE: 20111206
